FAERS Safety Report 5211675-1 (Version None)
Quarter: 2007Q1

REPORT INFORMATION
  Report Type: 
  Country: None (occurrence: None)
  Receive Date: 20070117
  Receipt Date: 20070117
  Transmission Date: 20070707
  Serious: Yes (Life-Threatening, Hospitalization)
  Sender: FDA-Public Use
  Company Number: None

PATIENT
  Age: 22 Year
  Sex: Male
  Weight: 95.2554 kg

DRUGS (2)
  1. CORICIDIN D SRT [Suspect]
     Indication: RESPIRATORY DISORDER
     Dosage: VARIED DEPENDING ON PERSON PO
     Route: 048
     Dates: start: 20061221, end: 20061223
  2. TUSSIN DM COLD+COUGH INK [Suspect]
     Indication: COUGH
     Dates: start: 20061224, end: 20061225

REACTIONS (16)
  - ABNORMAL BEHAVIOUR [None]
  - ANXIETY [None]
  - CHEST PAIN [None]
  - DEPRESSION [None]
  - DISTURBANCE IN SOCIAL BEHAVIOUR [None]
  - FEAR [None]
  - HEART RATE INCREASED [None]
  - INSOMNIA [None]
  - LIMB DISCOMFORT [None]
  - NECK PAIN [None]
  - PAIN IN EXTREMITY [None]
  - PANIC ATTACK [None]
  - PARAESTHESIA [None]
  - PARANOIA [None]
  - PSYCHOTIC DISORDER [None]
  - RESTLESSNESS [None]
